FAERS Safety Report 9145315 (Version 1)
Quarter: 2013Q1

REPORT INFORMATION
  Report Type: Spontaneous
  Country: US (occurrence: None)
  Receive Date: 20130227
  Receipt Date: 20130227
  Transmission Date: 20140127
  Serious: Yes (Death)
  Sender: FDA-Public Use
  Company Number: AUR-APL-2013-00443

PATIENT
  Age: 36 Year
  Sex: Female

DRUGS (3)
  1. ATENOLOL (ATENOLOL) [Suspect]
  2. AMITRIPTYLINE (AMITRIPTYLINE) [Suspect]
     Route: 048
  3. ETHANOL (ETHANOL) (UNKNOWN) (ETHANOL) [Suspect]

REACTIONS (1)
  - Completed suicide [None]
